FAERS Safety Report 11695284 (Version 3)
Quarter: 2015Q4

REPORT INFORMATION
  Report Type: Spontaneous
  Country: US (occurrence: US)
  Receive Date: 20151103
  Receipt Date: 20151129
  Transmission Date: 20160304
  Serious: Yes (Life-Threatening, Hospitalization)
  Sender: FDA-Public Use
  Company Number: US-HOSPIRA-3058720

PATIENT
  Age: 73 Year
  Sex: Female
  Weight: 78.5 kg

DRUGS (9)
  1. NOREPINEPHRINE [Concomitant]
     Active Substance: NOREPINEPHRINE\NOREPINEPHRINE BITARTRATE
     Indication: PRODUCT USED FOR UNKNOWN INDICATION
     Dates: start: 20151009
  2. ZOSYN [Concomitant]
     Active Substance: PIPERACILLIN SODIUM\TAZOBACTAM SODIUM
     Indication: EVIDENCE BASED TREATMENT
     Route: 042
     Dates: start: 20151008, end: 20151010
  3. LEVOPHED [Suspect]
     Active Substance: NOREPINEPHRINE BITARTRATE
     Indication: HYPOTENSION
     Route: 041
     Dates: start: 20151009, end: 20151009
  4. FENTANYL. [Concomitant]
     Active Substance: FENTANYL
     Indication: ANALGESIC THERAPY
     Dosage: AFTER EVENT OF DECREASED BP
     Route: 041
     Dates: start: 20151009
  5. PRECEDEX [Concomitant]
     Active Substance: DEXMEDETOMIDINE HYDROCHLORIDE
     Indication: SEDATIVE THERAPY
     Dosage: 0.4 TO 0.5 MCG/KG/HR, CONTINUOUS
     Route: 042
     Dates: start: 20151008
  6. HEPARIN [Concomitant]
     Active Substance: HEPARIN SODIUM
     Indication: PRODUCT USED FOR UNKNOWN INDICATION
     Route: 041
  7. LEVOPHED [Suspect]
     Active Substance: NOREPINEPHRINE BITARTRATE
     Indication: SHOCK
     Route: 041
     Dates: start: 20151009, end: 20151009
  8. ZOSYN [Concomitant]
     Active Substance: PIPERACILLIN SODIUM\TAZOBACTAM SODIUM
     Indication: ASPIRATION
     Route: 042
     Dates: start: 20151008, end: 20151010
  9. DEXTROSE WATER [Concomitant]
     Indication: MEDICATION DILUTION
     Dates: start: 20151009

REACTIONS (2)
  - Product preparation error [Recovered/Resolved]
  - Drug ineffective [Recovered/Resolved]

NARRATIVE: CASE EVENT DATE: 20151009
